FAERS Safety Report 12000856 (Version 1)
Quarter: 2016Q1

REPORT INFORMATION
  Report Type: Report from Study
  Country: US (occurrence: US)
  Receive Date: 20160204
  Receipt Date: 20160204
  Transmission Date: 20160526
  Serious: Yes (Other)
  Sender: FDA-Public Use
  Company Number: US-ASTELLAS-2015US024361

PATIENT
  Sex: Male

DRUGS (8)
  1. FLOMAX [Concomitant]
     Active Substance: TAMSULOSIN HYDROCHLORIDE
     Indication: PROSTATOMEGALY
     Dosage: 0.4 MG, ONCE DAILY
     Route: 048
  2. VYTORIN [Concomitant]
     Active Substance: EZETIMIBE\SIMVASTATIN
     Indication: BLOOD CHOLESTEROL INCREASED
     Dosage: 10-20 MG, ONCE DAILY
     Route: 065
  3. MIRALAX [Concomitant]
     Active Substance: POLYETHYLENE GLYCOL 3350
     Indication: PRODUCT USED FOR UNKNOWN INDICATION
     Dosage: UNK UNK, AS NEEDED
     Route: 065
  4. OMEPRAZOLE. [Concomitant]
     Active Substance: OMEPRAZOLE
     Indication: GASTROOESOPHAGEAL REFLUX DISEASE
     Route: 065
  5. ERLOTINIB [Suspect]
     Active Substance: ERLOTINIB
     Route: 048
  6. ERLOTINIB [Suspect]
     Active Substance: ERLOTINIB
     Indication: LUNG NEOPLASM MALIGNANT
     Route: 048
     Dates: start: 20090429
  7. CEPHALEXIN                         /00145501/ [Concomitant]
     Active Substance: CEPHALEXIN
     Indication: PROPHYLAXIS
     Route: 065
  8. ERLOTINIB [Suspect]
     Active Substance: ERLOTINIB
     Dosage: 25 MG, THRICE DAILY, AT NIGHT
     Route: 048
     Dates: start: 200908

REACTIONS (11)
  - Constipation [Unknown]
  - Haemorrhage [Unknown]
  - Dizziness [Unknown]
  - Skin infection [Unknown]
  - Hypoacusis [Not Recovered/Not Resolved]
  - Gastric disorder [Unknown]
  - Dermatitis infected [Recovered/Resolved with Sequelae]
  - Fall [Unknown]
  - Pulmonary congestion [Not Recovered/Not Resolved]
  - Diverticulitis [Unknown]
  - Clumsiness [Unknown]

NARRATIVE: CASE EVENT DATE: 2015
